FAERS Safety Report 17998306 (Version 1)
Quarter: 2020Q3

REPORT INFORMATION
  Report Type: Spontaneous
  Country: US (occurrence: US)
  Receive Date: 20200708
  Receipt Date: 20200708
  Transmission Date: 20201103
  Serious: No
  Sender: FDA-Public Use
  Company Number: US-ASTRAZENECA-2020SE84648

PATIENT
  Age: 37 Year
  Sex: Female
  Weight: 62.6 kg

DRUGS (1)
  1. SYMBICORT [Suspect]
     Active Substance: BUDESONIDE\FORMOTEROL FUMARATE DIHYDRATE
     Indication: ASTHMA
     Dosage: 80/4.5 MCG SYMBICORT 2 RESPIRATORY INHALATIONS TWICE DAILY
     Route: 055

REACTIONS (5)
  - Device issue [Unknown]
  - Dyspnoea [Recovered/Resolved with Sequelae]
  - Wrong technique in product usage process [Unknown]
  - Product use issue [Unknown]
  - Incorrect dose administered by device [Unknown]
